FAERS Safety Report 8202748-X (Version None)
Quarter: 2012Q1

REPORT INFORMATION
  Report Type: 
  Country: None (occurrence: None)
  Receive Date: 20120312
  Receipt Date: 20120312
  Transmission Date: 20120608
  Serious: Yes (Other)
  Sender: FDA-Public Use
  Company Number: None

PATIENT
  Age: 65 Year
  Sex: Female
  Weight: 74.842 kg

DRUGS (3)
  1. MIDAZOLAM [Concomitant]
     Dosage: 6MG
     Route: 042
     Dates: start: 20120214, end: 20120214
  2. MIDAZOLAM [Suspect]
     Indication: PREOPERATIVE CARE
     Dosage: 6.0 MG
     Route: 042
     Dates: start: 20120214, end: 20120214
  3. MIDAZOLAM [Suspect]
     Indication: SEDATION
     Dosage: 6.0 MG
     Route: 042
     Dates: start: 20120214, end: 20120214

REACTIONS (2)
  - PRODUCT QUALITY ISSUE [None]
  - DRUG EFFECT DECREASED [None]
